FAERS Safety Report 4865998-6 (Version None)
Quarter: 2005Q4

REPORT INFORMATION
  Report Type: 
  Country: None (occurrence: None)
  Receive Date: 20051221
  Receipt Date: 20051124
  Transmission Date: 20060501
  Serious: Yes (Other)
  Sender: FDA-Public Use
  Company Number: 200510824BFR

PATIENT
  Age: 77 Year
  Sex: Male

DRUGS (2)
  1. ACARBOSE [Suspect]
     Dosage: 150 MG, TOTAL DAILY, ORAL
     Route: 048
     Dates: start: 20050301
  2. ENALAPRIL MALEATE [Concomitant]

REACTIONS (1)
  - BLOOD CREATINE PHOSPHOKINASE INCREASED [None]
